FAERS Safety Report 7501294-6 (Version None)
Quarter: 2011Q2

REPORT INFORMATION
  Report Type: 
  Country: None (occurrence: None)
  Receive Date: 20110524
  Receipt Date: 20110517
  Transmission Date: 20111010
  Serious: Yes (Death)
  Sender: FDA-Public Use
  Company Number: JP-PFIZER INC-2011088956

PATIENT
  Age: 73 Year
  Sex: Male
  Weight: 57.4 kg

DRUGS (1)
  1. CEFOPERAZONE SODIUM [Suspect]
     Indication: INTESTINAL OBSTRUCTION
     Dosage: 1 G, 1X/DAY
     Route: 041
     Dates: start: 20110321, end: 20110321

REACTIONS (1)
  - ANAPHYLACTIC SHOCK [None]
